FAERS Safety Report 5586860-X (Version None)
Quarter: 2008Q1

REPORT INFORMATION
  Report Type: 
  Country: None (occurrence: None)
  Receive Date: 20080110
  Receipt Date: 20070509
  Transmission Date: 20080703
  Serious: Yes (Hospitalization)
  Sender: FDA-Public Use
  Company Number: US-BRISTOL-MYERS SQUIBB COMPANY-13774302

PATIENT
  Age: 80 Year
  Sex: Male
  Weight: 65 kg

DRUGS (7)
  1. CETUXIMAB [Suspect]
     Indication: PHARYNGEAL CANCER STAGE UNSPECIFIED
     Route: 042
     Dates: start: 20070227, end: 20070227
  2. CISPLATIN [Suspect]
     Indication: PHARYNGEAL CANCER STAGE UNSPECIFIED
     Route: 042
     Dates: start: 20070416, end: 20070416
  3. NIFEDIPINE [Concomitant]
  4. LIPITOR [Concomitant]
  5. ARICEPT [Concomitant]
  6. COREG [Concomitant]
  7. PEPCID [Concomitant]

REACTIONS (2)
  - ANOREXIA [None]
  - DEHYDRATION [None]
